FAERS Safety Report 14826272 (Version 4)
Quarter: 2018Q4

REPORT INFORMATION
  Report Type: Spontaneous
  Country: GB (occurrence: GB)
  Receive Date: 20180430
  Receipt Date: 20181010
  Transmission Date: 20190204
  Serious: Yes (Death, Hospitalization, Other)
  Sender: FDA-Public Use
  Company Number: GB-GLENMARK PHARMACEUTICALS-2018GMK034677

PATIENT

DRUGS (5)
  1. NEBIVOLOL 10 MG TABLETS [Suspect]
     Active Substance: NEBIVOLOL
     Dosage: UNK
     Route: 065
     Dates: start: 20180417
  2. AMIODARONE [Concomitant]
     Active Substance: AMIODARONE
     Indication: PRODUCT USED FOR UNKNOWN INDICATION
     Dosage: UNK
     Route: 065
  3. NEBIVOLOL 10 MG TABLETS [Suspect]
     Active Substance: NEBIVOLOL
     Indication: PRODUCT USED FOR UNKNOWN INDICATION
     Dosage: 2.5 MG, OD; IN THE MORNING
     Route: 065
     Dates: start: 201607
  4. NEBIVOLOL 10 MG TABLETS [Suspect]
     Active Substance: NEBIVOLOL
     Dosage: UNK, BID (5 MG IN THE MORNING AND 3.75 IN THE EVENING)
     Route: 065
  5. NEBIVOLOL 10 MG TABLETS [Suspect]
     Active Substance: NEBIVOLOL
     Dosage: 10 MG, QD
     Route: 065

REACTIONS (4)
  - Pneumonia [Fatal]
  - Purulent discharge [Recovering/Resolving]
  - Drug intolerance [Unknown]
  - Pemphigoid [Fatal]
